FAERS Safety Report 5927279-9 (Version None)
Quarter: 2008Q4

REPORT INFORMATION
  Report Type: 
  Country: None (occurrence: None)
  Receive Date: 20081022
  Receipt Date: 20081017
  Transmission Date: 20090506
  Serious: Yes (Hospitalization)
  Sender: FDA-Public Use
  Company Number: DE-MERCK-0810DEU00038

PATIENT
  Age: 75 Year
  Sex: Female
  Weight: 100 kg

DRUGS (5)
  1. ZETIA [Suspect]
     Indication: DYSLIPIDAEMIA
     Route: 048
     Dates: start: 20080801, end: 20081009
  2. OMEPRAZOLE [Concomitant]
     Route: 065
     Dates: end: 20081009
  3. PREDNISOLONE [Concomitant]
     Route: 065
  4. BENAZEPRIL HYDROCHLORIDE [Concomitant]
     Route: 065
     Dates: end: 20081009
  5. ASPIRIN [Concomitant]
     Route: 065

REACTIONS (2)
  - PRURITUS [None]
  - RASH GENERALISED [None]
